FAERS Safety Report 7480532-2 (Version None)
Quarter: 2011Q2

REPORT INFORMATION
  Report Type: 
  Country: None (occurrence: None)
  Receive Date: 20110516
  Receipt Date: 20110503
  Transmission Date: 20111010
  Serious: Yes (Other)
  Sender: FDA-Public Use
  Company Number: US-BIOGENIDEC-2010BI032801

PATIENT
  Age: 24 Year
  Sex: Female

DRUGS (4)
  1. BACLOFEN [Concomitant]
  2. ALPRAZOLAM [Concomitant]
  3. ZONISAMIDE [Concomitant]
     Indication: CONVULSION
  4. AVONEX [Suspect]
     Indication: MULTIPLE SCLEROSIS
     Route: 030
     Dates: start: 20100405

REACTIONS (5)
  - ABDOMINAL PAIN [None]
  - HEADACHE [None]
  - CONVULSION [None]
  - NAUSEA [None]
  - FATIGUE [None]
